FAERS Safety Report 9890531 (Version 1)
Quarter: 2014Q1

REPORT INFORMATION
  Report Type: Report from Study
  Country: MX (occurrence: MX)
  Receive Date: 20140212
  Receipt Date: 20140212
  Transmission Date: 20141002
  Serious: Yes (Hospitalization)
  Sender: FDA-Public Use
  Company Number: MX-ROCHE-1347197

PATIENT
  Age: 59 Year
  Sex: Female

DRUGS (3)
  1. LUCENTIS [Suspect]
     Indication: DIABETIC EYE DISEASE
     Route: 050
     Dates: start: 201312
  2. INSULIN [Concomitant]
     Route: 065
     Dates: start: 201312
  3. GLIBENCLAMIDE [Concomitant]
     Route: 065
     Dates: start: 200601

REACTIONS (2)
  - Malaise [Not Recovered/Not Resolved]
  - Off label use [Unknown]
